FAERS Safety Report 9852896 (Version 2)
Quarter: 2014Q2

REPORT INFORMATION
  Report Type: Spontaneous
  Country: US (occurrence: US)
  Receive Date: 20140129
  Receipt Date: 20140620
  Transmission Date: 20141212
  Serious: Yes (Other)
  Sender: FDA-Public Use
  Company Number: US-PFIZER INC-2014027079

PATIENT
  Age: 53 Year
  Sex: Female
  Weight: 54.42 kg

DRUGS (2)
  1. LYRICA [Suspect]
     Indication: FIBROMYALGIA
     Dosage: 50 MG, DAILY
     Dates: start: 201311
  2. TOPAMAX [Concomitant]
     Indication: MIGRAINE
     Dosage: 25 MG, 2X/DAY

REACTIONS (2)
  - Road traffic accident [Unknown]
  - Intervertebral disc protrusion [Unknown]
